FAERS Safety Report 21550016 (Version 3)
Quarter: 2022Q4

REPORT INFORMATION
  Report Type: Report from Study
  Country: US (occurrence: US)
  Receive Date: 20221103
  Receipt Date: 20221220
  Transmission Date: 20230113
  Serious: Yes (Other)
  Sender: FDA-Public Use
  Company Number: US-BRISTOL-MYERS SQUIBB COMPANY-2022-127332

PATIENT
  Age: 70 Year
  Sex: Female

DRUGS (1)
  1. ZEPOSIA [Suspect]
     Active Substance: OZANIMOD HYDROCHLORIDE
     Indication: Multiple sclerosis
     Dosage: DAILY
     Route: 048
     Dates: start: 20210803, end: 20211229

REACTIONS (9)
  - Hypersensitivity [Unknown]
  - COVID-19 [Recovered/Resolved]
  - Seizure [Unknown]
  - Auditory disorder [Unknown]
  - Muscular weakness [Unknown]
  - Fatigue [Unknown]
  - Hypersomnia [Unknown]
  - Cerebrovascular accident [Unknown]
  - Pruritus [Unknown]

NARRATIVE: CASE EVENT DATE: 20211229
